FAERS Safety Report 7825056-5 (Version None)
Quarter: 2011Q4

REPORT INFORMATION
  Report Type: 
  Country: None (occurrence: None)
  Receive Date: 20111019
  Receipt Date: 20110919
  Transmission Date: 20120403
  Serious: No
  Sender: FDA-Public Use
  Company Number: US-BRISTOL-MYERS SQUIBB COMPANY-15717622

PATIENT
  Age: 81 Year
  Sex: Male
  Weight: 100 kg

DRUGS (6)
  1. LORAZEPAM [Interacting]
  2. BYSTOLIC [Concomitant]
  3. AVALIDE [Interacting]
     Indication: HYPERTENSION
     Dosage: 1DF:150/12.5MG;ALSO 300/50MG 2ND:1MY11;START 15-20YRS INT 11,REST 20JUL 1ST TR:MR11,2ND TR:23JUN
     Route: 048
     Dates: start: 20110430
  4. ASPIRIN [Concomitant]
  5. AZILSARTAN MEDOXOMIL [Concomitant]
  6. DIOVAN HCT [Suspect]
     Dates: start: 20110201

REACTIONS (8)
  - PAIN IN EXTREMITY [None]
  - FEELING ABNORMAL [None]
  - VISUAL IMPAIRMENT [None]
  - DYSPNOEA [None]
  - ARTHRALGIA [None]
  - ABDOMINAL PAIN UPPER [None]
  - DRUG INTERACTION [None]
  - DIZZINESS [None]
